FAERS Safety Report 22749764 (Version 10)
Quarter: 2025Q1

REPORT INFORMATION
  Report Type: Spontaneous
  Country: PT (occurrence: PT)
  Receive Date: 20230726
  Receipt Date: 20250224
  Transmission Date: 20250409
  Serious: Yes (Hospitalization, Other)
  Sender: AUROBINDO
  Company Number: PT-AUROBINDO-AUR-APL-2023-048832

PATIENT
  Age: 63 Year
  Sex: Female

DRUGS (3)
  1. ESOMEPRAZOLE [Suspect]
     Active Substance: ESOMEPRAZOLE
     Indication: Hypertension
     Dosage: 40 MILLIGRAM, ONCE A DAY
     Route: 048
  2. ESOMEPRAZOLE [Suspect]
     Active Substance: ESOMEPRAZOLE
     Indication: Gastritis
  3. OLMESARTAN [Concomitant]
     Active Substance: OLMESARTAN
     Indication: Hypertension
     Route: 065

REACTIONS (12)
  - Drug eruption [Recovered/Resolved with Sequelae]
  - Lichen planus [Recovered/Resolved]
  - Dermatosis [Recovered/Resolved]
  - Dermatitis allergic [Recovered/Resolved]
  - Apoptosis [Recovered/Resolved]
  - Pruritus [Recovered/Resolved]
  - Rash papular [Recovered/Resolved]
  - Hyperplasia [Recovered/Resolved]
  - Excessive granulation tissue [Recovered/Resolved]
  - Parakeratosis [Recovered/Resolved]
  - Tissue infiltration [Recovered/Resolved]
  - Off label use [Recovered/Resolved]
